FAERS Safety Report 9617673 (Version 1)
Quarter: 2013Q4

REPORT INFORMATION
  Report Type: Spontaneous
  Country: US (occurrence: US)
  Receive Date: 20131011
  Receipt Date: 20131011
  Transmission Date: 20140711
  Serious: Yes (Other)
  Sender: FDA-Public Use
  Company Number: US-ELI_LILLY_AND_COMPANY-US201310001267

PATIENT
  Sex: Male
  Weight: 131.97 kg

DRUGS (1)
  1. INSULIN HUMAN [Suspect]
     Dosage: UNK
     Route: 058

REACTIONS (2)
  - Wound [Unknown]
  - Wrong technique in drug usage process [Unknown]
